FAERS Safety Report 7049063-8 (Version None)
Quarter: 2010Q4

REPORT INFORMATION
  Report Type: 
  Country: None (occurrence: None)
  Receive Date: 20101012
  Receipt Date: 20100930
  Transmission Date: 20110411
  Serious: Yes (Death, Hospitalization)
  Sender: FDA-Public Use
  Company Number: 2010MA003154

PATIENT
  Age: 44 Year
  Sex: Male

DRUGS (11)
  1. SULFATRIM PEDIATRIC [Suspect]
     Indication: PNEUMOCYSTIS JIROVECI PNEUMONIA
     Dosage: QD;IV
     Route: 042
  2. ANTILYMPHOCYTE GLOBULIN [Concomitant]
  3. CYCLOSPORINE [Concomitant]
  4. PREDNISOLONE [Concomitant]
  5. MYCOPHENOLATE MOFETIL [Concomitant]
  6. HYDROCORTISONE [Concomitant]
  7. CEFTRIAXONE [Concomitant]
  8. ERYTHROMYCIN [Concomitant]
  9. GANCICLOVIR [Concomitant]
  10. DAPSONE [Concomitant]
  11. PREV MEDS [Concomitant]

REACTIONS (12)
  - GENERAL PHYSICAL HEALTH DETERIORATION [None]
  - HYPERCAPNIA [None]
  - INTERSTITIAL LUNG DISEASE [None]
  - LUNG ABSCESS [None]
  - LYMPHOCYTE COUNT INCREASED [None]
  - NEUTROPHIL COUNT DECREASED [None]
  - NO THERAPEUTIC RESPONSE [None]
  - PNEUMOCYSTIS JIROVECI PNEUMONIA [None]
  - PNEUMOTHORAX [None]
  - PULMONARY CAVITATION [None]
  - PULMONARY HAEMORRHAGE [None]
  - TORSADE DE POINTES [None]
